FAERS Safety Report 24635256 (Version 1)
Quarter: 2024Q4

REPORT INFORMATION
  Report Type: Spontaneous
  Country: US (occurrence: US)
  Receive Date: 20241119
  Receipt Date: 20241119
  Transmission Date: 20250114
  Serious: No
  Sender: AMNEAL
  Company Number: US-AMNEAL PHARMACEUTICALS-2023-AMRX-04290

PATIENT
  Age: 22 Year

DRUGS (5)
  1. ISOTRETINOIN [Suspect]
     Active Substance: ISOTRETINOIN
     Indication: Dermatitis papillaris capillitii
     Dosage: 60 MG DAILY
  2. ISOTRETINOIN [Suspect]
     Active Substance: ISOTRETINOIN
     Indication: Rhinophyma
     Dosage: 40 MG DAILY
  3. ISOTRETINOIN [Suspect]
     Active Substance: ISOTRETINOIN
     Indication: Acne
     Dosage: 60 MG DAILY
     Dates: start: 202306
  4. ISOTRETINOIN [Suspect]
     Active Substance: ISOTRETINOIN
     Dosage: TAKING 60 MG EVERY OTHER DAY FOR 3 WEEKS
     Route: 048
     Dates: start: 20230601, end: 20230901
  5. ISOTRETINOIN [Suspect]
     Active Substance: ISOTRETINOIN
     Dosage: 40 MG EVERY OTHER DAY FOR 1 WEEK
     Route: 048

REACTIONS (5)
  - Blood triglycerides increased [Recovered/Resolved]
  - Alanine aminotransferase increased [Recovered/Resolved]
  - Epistaxis [Unknown]
  - Lip dry [Unknown]
  - Product use issue [Unknown]

NARRATIVE: CASE EVENT DATE: 20230901
